FAERS Safety Report 9061317 (Version 2)
Quarter: 2013Q1

REPORT INFORMATION
  Report Type: Report from Study
  Country: US (occurrence: US)
  Receive Date: 20130204
  Receipt Date: 20130215
  Transmission Date: 20140127
  Serious: Yes (Hospitalization)
  Sender: FDA-Public Use
  Company Number: US-ASTELLAS-2013US001142

PATIENT
  Age: 62 None
  Sex: Female
  Weight: 70 kg

DRUGS (7)
  1. ERLOTINIB TABLET [Suspect]
     Indication: PANCREATIC CARCINOMA
     Dosage: 100 MG, UID/QD
     Route: 048
     Dates: start: 20121018
  2. GEMCITABINE [Suspect]
     Indication: PANCREATIC CARCINOMA
     Dosage: 1830 MG, DAYS 6, 8, 15 Q28 DAYS
     Route: 042
     Dates: start: 20121018
  3. DEXAMETHASONE [Concomitant]
     Indication: DYSPEPSIA
     Dosage: 4 MG, UNKNOWN/D
     Route: 048
  4. HYDROMORPHONE [Concomitant]
     Indication: PAIN
     Dosage: UNK
     Route: 048
  5. LORAZEPAM [Concomitant]
     Indication: PRODUCT USED FOR UNKNOWN INDICATION
     Dosage: 0.5 MG, UID/QD
     Route: 048
  6. ZOFRAN                             /00955301/ [Concomitant]
     Indication: PRODUCT USED FOR UNKNOWN INDICATION
     Dosage: UNK
     Route: 065
  7. COMPAZINE                          /00013302/ [Concomitant]
     Indication: PRODUCT USED FOR UNKNOWN INDICATION
     Dosage: UNK
     Route: 065

REACTIONS (10)
  - Hypoxia [Recovering/Resolving]
  - Pulmonary embolism [Recovered/Resolved]
  - Thrombosis [Recovering/Resolving]
  - Small intestinal perforation [Recovered/Resolved]
  - Tongue disorder [Unknown]
  - Dyspepsia [Recovering/Resolving]
  - Skin fissures [Not Recovered/Not Resolved]
  - Appetite disorder [Unknown]
  - Constipation [Not Recovered/Not Resolved]
  - Dry skin [Not Recovered/Not Resolved]
